FAERS Safety Report 7830626-4 (Version None)
Quarter: 2011Q4

REPORT INFORMATION
  Report Type: 
  Country: None (occurrence: None)
  Receive Date: 20111021
  Receipt Date: 20111013
  Transmission Date: 20120403
  Serious: Yes (Hospitalization)
  Sender: FDA-Public Use
  Company Number: AT-ABBOTT-11P-009-0863841-03

PATIENT
  Sex: Female
  Weight: 59 kg

DRUGS (10)
  1. FOLIC ACID [Concomitant]
     Indication: VITAMIN SUPPLEMENTATION
     Dates: start: 20090716
  2. HUMIRA [Suspect]
     Dosage: (WEEK) 2
     Route: 058
  3. FOLIC ACID [Concomitant]
     Indication: PROPHYLAXIS
     Dates: start: 20091015
  4. METHOTREXATE [Concomitant]
     Indication: CROHN'S DISEASE
     Dates: start: 20090716
  5. METHOTREXATE [Concomitant]
     Dates: start: 20091015
  6. HUMIRA [Suspect]
     Route: 058
     Dates: end: 20110603
  7. FOLIC ACID [Concomitant]
  8. HUMIRA [Suspect]
     Indication: CROHN'S DISEASE
     Route: 058
     Dates: start: 20080212, end: 20080212
  9. FOLIC ACID [Concomitant]
     Indication: OSTEOPOROSIS PROPHYLAXIS
     Dates: start: 20090716
  10. PURINETHOL [Concomitant]
     Indication: CROHN'S DISEASE
     Dates: start: 20080619, end: 20090915

REACTIONS (2)
  - LEUKOPENIA [None]
  - PYREXIA [None]
